FAERS Safety Report 7094191-4 (Version None)
Quarter: 2010Q4

REPORT INFORMATION
  Report Type: 
  Country: None (occurrence: None)
  Receive Date: 20101110
  Receipt Date: 20101026
  Transmission Date: 20110411
  Serious: Yes (Life-Threatening, Hospitalization)
  Sender: FDA-Public Use
  Company Number: CA-PFIZER INC-2010136004

PATIENT
  Age: 74 Year
  Sex: Male
  Weight: 67 kg

DRUGS (4)
  1. SUNITINIB MALATE [Suspect]
     Indication: NON-SMALL CELL LUNG CANCER
     Dosage: 25 MG, 1X/DAY
     Route: 048
     Dates: start: 20080925, end: 20101104
  2. ERLOTINIB HYDROCHLORIDE [Suspect]
     Indication: NON-SMALL CELL LUNG CANCER
     Dosage: 100 MG, 1X/DAY
     Route: 048
     Dates: start: 20080925, end: 20101104
  3. IMODIUM [Concomitant]
     Indication: DIARRHOEA
     Dosage: 2 MG, AS NEEDED
     Route: 048
     Dates: start: 20091120
  4. CODEINE [Concomitant]
     Indication: COUGH
     Dosage: 30 MG, AS NEEDED
     Route: 048
     Dates: start: 20090901

REACTIONS (2)
  - ABDOMINAL PAIN UPPER [None]
  - GALLBLADDER PERFORATION [None]
